FAERS Safety Report 8393328 (Version 2)
Quarter: 2020Q2

REPORT INFORMATION
  Report Type: Spontaneous
  Country: US (occurrence: US)
  Receive Date: 20120207
  Receipt Date: 20200402
  Transmission Date: 20200714
  Serious: Yes (Hospitalization)
  Sender: FDA-Public Use
  Company Number: US-PFIZER INC-2012029048

PATIENT
  Age: 65 Year
  Sex: Female
  Weight: 75.28 kg

DRUGS (3)
  1. DETROL LA [Suspect]
     Active Substance: TOLTERODINE TARTRATE
     Indication: HYPERTONIC BLADDER
  2. DETROL LA [Suspect]
     Active Substance: TOLTERODINE TARTRATE
     Indication: RENAL DISORDER
     Dosage: 4 MG, DAILY
  3. ACETYLSALICYLIC ACID [Concomitant]
     Active Substance: ASPIRIN
     Dosage: UNK, DAILY

REACTIONS (1)
  - Cardiac disorder [Unknown]

NARRATIVE: CASE EVENT DATE: 2009
